FAERS Safety Report 8380320-9 (Version None)
Quarter: 2012Q2

REPORT INFORMATION
  Report Type: 
  Country: None (occurrence: None)
  Receive Date: 20120430
  Receipt Date: 20120202
  Transmission Date: 20120825
  Serious: No
  Sender: FDA-Public Use
  Company Number: GAM-014-12-US

PATIENT
  Age: 52 Year
  Sex: Female

DRUGS (1)
  1. OCTAGAM [Suspect]
     Dosage: IV
     Route: 042

REACTIONS (2)
  - MUSCLE SPASMS [None]
  - MUSCLE TWITCHING [None]
